FAERS Safety Report 5409322-9 (Version None)
Quarter: 2007Q3

REPORT INFORMATION
  Report Type: 
  Country: None (occurrence: None)
  Receive Date: 20070807
  Receipt Date: 20070724
  Transmission Date: 20080115
  Serious: Yes (Death, Other)
  Sender: FDA-Public Use
  Company Number: 2007EU001669

PATIENT
  Age: 30 Year
  Sex: Female

DRUGS (3)
  1. FK506(TACROLIMUS) FORMULATION UNKNOWN [Suspect]
     Indication: RENAL AND PANCREAS TRANSPLANT
     Dates: start: 20050101
  2. CORTICOSTEROIDS [Concomitant]
  3. MYCOPHENOLATE MOFETIL [Concomitant]

REACTIONS (3)
  - BRONCHIAL HAEMORRHAGE [None]
  - MULTI-ORGAN FAILURE [None]
  - PNEUMONIA STAPHYLOCOCCAL [None]
